FAERS Safety Report 5224046-9 (Version None)
Quarter: 2007Q1

REPORT INFORMATION
  Report Type: 
  Country: None (occurrence: None)
  Receive Date: 20070130
  Receipt Date: 20070122
  Transmission Date: 20070707
  Serious: Yes (Other)
  Sender: FDA-Public Use
  Company Number: PHBS2007BE01172

PATIENT
  Sex: Female

DRUGS (1)
  1. LAMISIL [Suspect]
     Indication: ONYCHOMYCOSIS
     Dosage: 250 MG/D
     Route: 048
     Dates: end: 20061201

REACTIONS (6)
  - CHROMATURIA [None]
  - FAECES DISCOLOURED [None]
  - GASTROENTERITIS [None]
  - LIVER DISORDER [None]
  - NAUSEA [None]
  - VOMITING [None]
